FAERS Safety Report 9301520 (Version 1)
Quarter: 2012Q4

REPORT INFORMATION
  Report Type: Spontaneous
  Country: IT (occurrence: None)
  Receive Date: 20121121
  Receipt Date: 20121121
  Transmission Date: 20130627
  Serious: Yes (Life-Threatening)
  Sender: FDA-Public Use
  Company Number: VAL_00950_2012

PATIENT
  Age: 35 Year
  Sex: Female

DRUGS (1)
  1. PARLODEL [Suspect]
     Indication: PRODUCT USED FOR UNKNOWN INDICATION
     Route: 048
     Dates: start: 20120826, end: 20120826

REACTIONS (3)
  - Dyspnoea [None]
  - Palatal oedema [None]
  - Drug hypersensitivity [None]
